FAERS Safety Report 12042572 (Version 1)
Quarter: 2016Q1

REPORT INFORMATION
  Report Type: Spontaneous
  Country: NL (occurrence: NL)
  Receive Date: 20160208
  Receipt Date: 20160208
  Transmission Date: 20160526
  Serious: Yes (Other)
  Sender: FDA-Public Use
  Company Number: NL-009507513-1602NLD003314

PATIENT
  Sex: Female
  Weight: 50 kg

DRUGS (4)
  1. PERINDOPRIL ERBUMINE. [Concomitant]
     Active Substance: PERINDOPRIL ERBUMINE
     Dosage: 1 TIME PER DAY 1 PIECE(S), EXTRA INFO: 2 MG
     Route: 048
     Dates: start: 2012
  2. PANTOPRAZOLE [Concomitant]
     Active Substance: PANTOPRAZOLE SODIUM
     Dosage: 1 TIME PER DAY 1 PIECE(S), EXTRA INFO: 40
     Route: 048
     Dates: start: 2012
  3. SIMVASTATIN. [Suspect]
     Active Substance: SIMVASTATIN
     Indication: CARDIOVASCULAR EVENT PROPHYLAXIS
     Dosage: 1 TIME PER DAY 1 PIECE(S)
     Route: 048
     Dates: start: 2012, end: 20160118
  4. ASPIRIN. [Concomitant]
     Active Substance: ASPIRIN
     Dosage: 1 TIME PER DAY 1 PIECE(S), EXTRA INFO: 80
     Route: 048
     Dates: start: 2012

REACTIONS (4)
  - Amnesia [Unknown]
  - Angiopathy [Recovering/Resolving]
  - Dyspnoea exertional [Recovering/Resolving]
  - Muscular weakness [Recovering/Resolving]

NARRATIVE: CASE EVENT DATE: 2012
